FAERS Safety Report 25808248 (Version 2)
Quarter: 2025Q3

REPORT INFORMATION
  Report Type: Spontaneous
  Country: US (occurrence: US)
  Receive Date: 20250916
  Receipt Date: 20250918
  Transmission Date: 20251021
  Serious: Yes (Other)
  Sender: SANDOZ
  Company Number: US-002147023-NVSC2025US142967

PATIENT
  Age: 93 Year
  Sex: Female
  Weight: 49 kg

DRUGS (6)
  1. AZITHROMYCIN [Suspect]
     Active Substance: AZITHROMYCIN
     Indication: Mycobacterium avium complex infection
     Dosage: 250 MG, TIW
     Route: 065
     Dates: start: 20200616, end: 20250714
  2. AZITHROMYCIN [Suspect]
     Active Substance: AZITHROMYCIN
     Route: 065
  3. CLOFAZIMINE [Suspect]
     Active Substance: CLOFAZIMINE
     Indication: Mycobacterium avium complex infection
     Route: 048
     Dates: start: 20250528, end: 20250714
  4. CLOFAZIMINE [Suspect]
     Active Substance: CLOFAZIMINE
     Route: 065
     Dates: start: 20250808
  5. RIFAMPIN [Suspect]
     Active Substance: RIFAMPIN
     Indication: Mycobacterium avium complex infection
     Dosage: 600 MG, TIW
     Route: 065
     Dates: start: 20200616, end: 20250714
  6. RIFAMPIN [Suspect]
     Active Substance: RIFAMPIN
     Route: 065

REACTIONS (2)
  - Squamous cell carcinoma [Recovered/Resolved]
  - Visual impairment [Recovered/Resolved]

NARRATIVE: CASE EVENT DATE: 20250625
